FAERS Safety Report 6475409-5 (Version None)
Quarter: 2009Q4

REPORT INFORMATION
  Report Type: 
  Country: None (occurrence: None)
  Receive Date: 20091204
  Receipt Date: 20081229
  Transmission Date: 20100525
  Serious: No
  Sender: FDA-Public Use
  Company Number: US-AMGEN-KDL326184

PATIENT
  Sex: Female

DRUGS (2)
  1. ENBREL [Suspect]
     Indication: RHEUMATOID ARTHRITIS
     Route: 058
     Dates: start: 20040903
  2. METHOTREXATE [Concomitant]
     Route: 048
     Dates: start: 20030901

REACTIONS (4)
  - ABASIA [None]
  - HYPOAESTHESIA [None]
  - INJECTION SITE INJURY [None]
  - PAIN IN EXTREMITY [None]
